FAERS Safety Report 22641833 (Version 1)
Quarter: 2023Q2

REPORT INFORMATION
  Report Type: Spontaneous
  Country: FR (occurrence: FR)
  Receive Date: 20230626
  Receipt Date: 20230626
  Transmission Date: 20230721
  Serious: Yes (Hospitalization)
  Sender: FDA-Public Use
  Company Number: None

PATIENT
  Age: 63 Year
  Sex: Female
  Weight: 45 kg

DRUGS (7)
  1. LEVETIRACETAM [Suspect]
     Active Substance: LEVETIRACETAM
     Indication: Seizure
     Dates: start: 20230517, end: 20230523
  2. LOXAPINE [Concomitant]
     Active Substance: LOXAPINE
     Indication: Product used for unknown indication
  3. HALOPERIDOL DECANOATE [Concomitant]
     Active Substance: HALOPERIDOL DECANOATE
     Indication: Schizoaffective disorder
     Dates: end: 20230502
  4. HALOPERIDOL [Concomitant]
     Active Substance: HALOPERIDOL
     Indication: Schizoaffective disorder
     Dates: start: 20230524
  5. HALOPERIDOL [Concomitant]
     Active Substance: HALOPERIDOL
     Dates: start: 20230519, end: 20230523
  6. HALOPERIDOL [Concomitant]
     Active Substance: HALOPERIDOL
     Dates: start: 20230516, end: 20230518
  7. LOVENOX [Concomitant]
     Active Substance: ENOXAPARIN SODIUM
     Indication: Product used for unknown indication
     Dosage: ANTI-XA IU/0.4 ML

REACTIONS (1)
  - Hepatic cytolysis [Recovered/Resolved]

NARRATIVE: CASE EVENT DATE: 20230523
